FAERS Safety Report 15027342 (Version 3)
Quarter: 2019Q4

REPORT INFORMATION
  Report Type: Spontaneous
  Country: ES (occurrence: ES)
  Receive Date: 20180619
  Receipt Date: 20191018
  Transmission Date: 20200122
  Serious: No
  Sender: FDA-Public Use
  Company Number: ES-LUPIN PHARMACEUTICALS INC.-2018-03134

PATIENT
  Age: 8 Year
  Sex: Male

DRUGS (8)
  1. CETIRIZINE [Concomitant]
     Active Substance: CETIRIZINE HYDROCHLORIDE
     Indication: ABDOMINAL PAIN
  2. FLUNARIZINE [Concomitant]
     Active Substance: FLUNARIZINE
     Indication: MIGRAINE
     Dosage: 05 MILLIGRAM, QD
     Route: 048
  3. SODIUM CROMOGLYCATE [Concomitant]
     Active Substance: CROMOLYN SODIUM
     Indication: ABDOMINAL PAIN
  4. OMEPRAZOLE. [Suspect]
     Active Substance: OMEPRAZOLE
     Indication: URTICARIA PIGMENTOSA
     Dosage: 20 MILLIGRAM, QD
     Route: 048
  5. OMEPRAZOLE. [Suspect]
     Active Substance: OMEPRAZOLE
     Indication: INTUSSUSCEPTION
  6. OMEPRAZOLE. [Suspect]
     Active Substance: OMEPRAZOLE
     Indication: ABDOMINAL PAIN
     Dosage: 40 MILLIGRAM, QD (DOSE INCREASED)
     Route: 048
  7. SODIUM CROMOGLYCATE [Concomitant]
     Active Substance: CROMOLYN SODIUM
     Indication: URTICARIA PIGMENTOSA
     Dosage: 100 MG, TID
     Route: 048
  8. CETIRIZINE [Concomitant]
     Active Substance: CETIRIZINE HYDROCHLORIDE
     Indication: URTICARIA PIGMENTOSA
     Dosage: 5 MILLIGRAM, QD
     Route: 048

REACTIONS (1)
  - Hypertrichosis [Recovered/Resolved]
